FAERS Safety Report 16560108 (Version 2)
Quarter: 2019Q4

REPORT INFORMATION
  Report Type: Spontaneous
  Country: US (occurrence: US)
  Receive Date: 20190711
  Receipt Date: 20191111
  Transmission Date: 20200122
  Serious: Yes (Hospitalization, Other)
  Sender: FDA-Public Use
  Company Number: US-GLAXOSMITHKLINE-US2019GSK124990

PATIENT
  Sex: Female

DRUGS (1)
  1. PREVACID [Suspect]
     Active Substance: LANSOPRAZOLE
     Indication: GASTROOESOPHAGEAL REFLUX DISEASE
     Dosage: 15 MG, QD
     Route: 065

REACTIONS (11)
  - Renal impairment [Unknown]
  - Nephrosclerosis [Unknown]
  - Stress urinary incontinence [Unknown]
  - Hypertensive nephropathy [Unknown]
  - Haematuria [Unknown]
  - Pollakiuria [Unknown]
  - Incontinence [Unknown]
  - Chronic kidney disease [Unknown]
  - Nephrolithiasis [Unknown]
  - Dysuria [Unknown]
  - Acute kidney injury [Unknown]
